FAERS Safety Report 8022244-2 (Version None)
Quarter: 2012Q1

REPORT INFORMATION
  Report Type: 
  Country: None (occurrence: None)
  Receive Date: 20120104
  Receipt Date: 20111117
  Transmission Date: 20120608
  Serious: Yes (Other)
  Sender: FDA-Public Use
  Company Number: US-CEPHALON-2011005873

PATIENT
  Sex: Female
  Weight: 75 kg

DRUGS (8)
  1. EFFEXOR [Concomitant]
     Indication: DEPRESSION
     Route: 048
     Dates: start: 20070101
  2. WELLBUTRIN [Concomitant]
     Indication: DEPRESSION
     Route: 048
     Dates: start: 20050101
  3. REQUIP [Concomitant]
     Indication: RESTLESS LEGS SYNDROME
     Route: 048
     Dates: start: 20100101
  4. NUVIGIL [Suspect]
     Indication: SLEEP APNOEA SYNDROME
     Route: 048
     Dates: start: 20111001, end: 20111108
  5. CLONAZEPAM [Concomitant]
     Indication: ANXIETY
     Route: 048
  6. NUVIGIL [Suspect]
     Route: 048
     Dates: start: 20111109, end: 20111117
  7. ATENOLOL [Concomitant]
     Indication: HEART RATE INCREASED
     Route: 048
     Dates: start: 20090101
  8. EFFEXOR [Concomitant]
     Indication: ANXIETY

REACTIONS (4)
  - APHASIA [None]
  - AMNESIA [None]
  - DRUG INEFFECTIVE [None]
  - INTENTIONAL DRUG MISUSE [None]
